FAERS Safety Report 15214766 (Version 1)
Quarter: 2018Q4

REPORT INFORMATION
  Report Type: Spontaneous
  Country: US (occurrence: US)
  Receive Date: 20180730
  Receipt Date: 20180730
  Transmission Date: 20190204
  Serious: No
  Sender: FDA-Public Use
  Company Number: US-EX USA HOLDINGS-EXHL20180397

PATIENT
  Sex: Male

DRUGS (2)
  1. BENZNIDAZOLE. [Suspect]
     Active Substance: BENZNIDAZOLE
     Indication: AMERICAN TRYPANOSOMIASIS
     Dosage: 2 TABLETS (200 MG)
     Route: 048
     Dates: start: 201805
  2. BENZNIDAZOLE. [Suspect]
     Active Substance: BENZNIDAZOLE
     Indication: CHAGAS^ CARDIOMYOPATHY

REACTIONS (3)
  - Rash pruritic [Not Recovered/Not Resolved]
  - Rash erythematous [Not Recovered/Not Resolved]
  - Product use issue [None]

NARRATIVE: CASE EVENT DATE: 2018
